FAERS Safety Report 7432162-6 (Version None)
Quarter: 2011Q2

REPORT INFORMATION
  Report Type: 
  Country: None (occurrence: None)
  Receive Date: 20110422
  Receipt Date: 20110408
  Transmission Date: 20111010
  Serious: Yes (Other)
  Sender: FDA-Public Use
  Company Number: PHHY2011US30494

PATIENT
  Sex: Female

DRUGS (1)
  1. SANDOSTATIN LAR [Suspect]
     Indication: IRON DEFICIENCY ANAEMIA
     Dosage: 20 MG, UNK

REACTIONS (6)
  - DIABETES MELLITUS [None]
  - HYPERLIPIDAEMIA [None]
  - CARDIAC FAILURE CONGESTIVE [None]
  - HYPERTENSION [None]
  - HYPOTHYROIDISM [None]
  - CARDIAC DISORDER [None]
